FAERS Safety Report 7643775-0 (Version None)
Quarter: 2011Q3

REPORT INFORMATION
  Report Type: 
  Country: None (occurrence: None)
  Receive Date: 20110722
  Receipt Date: 20110705
  Transmission Date: 20111222
  Serious: Yes (Other)
  Sender: FDA-Public Use
  Company Number: CIO11012837

PATIENT
  Age: 40 Year
  Sex: Female

DRUGS (1)
  1. PSYLLIUM HYDROPHILIC MUCILLOID(PSYLLIUM HYDROPHILIC MUCILLOID) UNKNOWN [Suspect]
     Indication: ANAL INJURY
     Dosage: 3/WEEK FOR SEVERAL YEARS, ORAL ; 1 ONLY, ORAL
     Route: 048

REACTIONS (15)
  - PHARYNGEAL LESION [None]
  - SKIN LESION [None]
  - DRUG HYPERSENSITIVITY [None]
  - RASH PRURITIC [None]
  - BLOOD IMMUNOGLOBULIN E INCREASED [None]
  - RADIOALLERGOSORBENT TEST POSITIVE [None]
  - WHEEZING [None]
  - LIP SWELLING [None]
  - DERMATITIS [None]
  - RASH ERYTHEMATOUS [None]
  - MACULE [None]
  - CHOKING SENSATION [None]
  - CHEST DISCOMFORT [None]
  - SWELLING FACE [None]
  - URTICARIA [None]
